FAERS Safety Report 24330192 (Version 1)
Quarter: 2024Q3

REPORT INFORMATION
  Report Type: Report from Study
  Country: TN (occurrence: TN)
  Receive Date: 20240917
  Receipt Date: 20240917
  Transmission Date: 20241017
  Serious: Yes (Hospitalization)
  Sender: ABBVIE
  Company Number: TN-ABBVIE-5922838

PATIENT
  Age: 42 Year
  Sex: Female

DRUGS (2)
  1. HUMIRA [Suspect]
     Active Substance: ADALIMUMAB
     Indication: Crohn^s disease
     Dosage: FORM STRENGTH: 40 MG
     Route: 058
     Dates: start: 20230213, end: 20240702
  2. PREDNISOLONE [Concomitant]
     Active Substance: PREDNISOLONE
     Indication: Haemorrhoids
     Dosage: 1 TAB/DAY ; SOMETIMES 2 TABS/DAY WHEN THE HEMORRHOIDS ARE ACCENTUATED?FORM STRENGTH: 20 MILLIGRAM
     Route: 048
     Dates: end: 20240906

REACTIONS (5)
  - Gastrointestinal injury [Not Recovered/Not Resolved]
  - Diarrhoea [Recovering/Resolving]
  - Gastrointestinal inflammation [Not Recovered/Not Resolved]
  - Gastrointestinal disorder [Not Recovered/Not Resolved]
  - Anal haemorrhage [Recovering/Resolving]

NARRATIVE: CASE EVENT DATE: 20240702
